FAERS Safety Report 9907961 (Version 1)
Quarter: 2014Q1

REPORT INFORMATION
  Report Type: Report from Study
  Country: US (occurrence: US)
  Receive Date: 20140219
  Receipt Date: 20140219
  Transmission Date: 20141002
  Serious: Yes (Other)
  Sender: FDA-Public Use
  Company Number: US-ROCHE-1331157

PATIENT
  Sex: Female

DRUGS (5)
  1. AVASTIN [Suspect]
     Indication: OVARIAN CANCER
     Dosage: THE PATIENT RECEIVED A DOSE OF 925 MG ON 30/JUL/2012, 20/AUG/2012 AND 01/OCT/2012
     Route: 042
     Dates: start: 20120709
  2. KYTRIL [Suspect]
     Indication: OVARIAN CANCER
     Dosage: THE PATIENT RECEIVED A DOSE ON 16/JUL/2012, 30/JUL/2012, 08/AUG/2012, 20/AUG/2012, 10/SEP/2012 AND 0
     Route: 042
     Dates: start: 20120709
  3. GEMCITABINE [Concomitant]
     Dosage: DOSE: 1660 MG
     Route: 042
  4. CARBOPLATIN [Concomitant]
     Dosage: TARGET AUC 4
     Route: 042
     Dates: start: 20120709
  5. DEXAMETHASONE [Concomitant]
     Route: 042

REACTIONS (1)
  - Neutropenia [Unknown]
